FAERS Safety Report 7599523-6 (Version None)
Quarter: 2011Q3

REPORT INFORMATION
  Report Type: 
  Country: None (occurrence: None)
  Receive Date: 20110711
  Receipt Date: 20110127
  Transmission Date: 20111222
  Serious: Yes (Hospitalization, Other)
  Sender: FDA-Public Use
  Company Number: US-BAYER-200940955NA

PATIENT
  Age: 56 Year
  Sex: Male
  Weight: 65.76 kg

DRUGS (15)
  1. ISOVUE-128 [Concomitant]
     Dosage: 370 ML, UNK
     Route: 013
     Dates: start: 20060712
  2. LOVENOX [Concomitant]
     Dosage: 1 MG/KG, Q12H
     Route: 060
  3. PROCARDIA [Concomitant]
  4. ACETYLSALICYLIC ACID SRT [Concomitant]
     Dosage: 325 MG, QD
     Route: 048
     Dates: start: 20060711
  5. HEPARIN [Concomitant]
     Dosage: UNK
     Route: 042
     Dates: start: 20060711, end: 20060713
  6. TRASYLOL [Suspect]
     Indication: CORONARY ARTERY BYPASS
     Route: 042
     Dates: start: 20060714
  7. COREG [Concomitant]
     Dosage: 25 MG, BID
     Route: 048
  8. LIPITOR [Concomitant]
     Dosage: 40 MG, QD
     Route: 048
  9. ALLOPURINOL [Concomitant]
  10. MAGNESIUM [Concomitant]
     Dosage: UNK
     Dates: start: 20060712
  11. LIDOCAINE [Concomitant]
     Dosage: 20 ML, UNK
     Route: 058
     Dates: start: 20060712
  12. CAPTOPRIL [Concomitant]
     Dosage: 12.5 MG, TID
     Route: 048
     Dates: start: 20060711
  13. NITROGLYCERIN [Concomitant]
     Dosage: 1 INCH EVERY 6 HOURS
     Route: 062
     Dates: start: 20060711
  14. ATENOLOL [Concomitant]
     Dosage: UNK
  15. LABETALOL HCL [Concomitant]
     Dosage: 20 MG, UNK
     Route: 042
     Dates: start: 20060712

REACTIONS (10)
  - ANHEDONIA [None]
  - PAIN [None]
  - INJURY [None]
  - EMOTIONAL DISTRESS [None]
  - RENAL FAILURE [None]
  - FEAR [None]
  - ANXIETY [None]
  - RENAL INJURY [None]
  - UNEVALUABLE EVENT [None]
  - STRESS [None]
